FAERS Safety Report 5803371-4 (Version None)
Quarter: 2008Q3

REPORT INFORMATION
  Report Type: 
  Country: None (occurrence: None)
  Receive Date: 20080708
  Receipt Date: 20080702
  Transmission Date: 20090109
  Serious: Yes (Other)
  Sender: FDA-Public Use
  Company Number: SE-TEVA-173785ISR

PATIENT
  Age: 43 Year
  Sex: Female

DRUGS (1)
  1. FLUOROURACIL [Suspect]

REACTIONS (1)
  - CARDIAC FAILURE [None]
